FAERS Safety Report 8612100-0 (Version None)
Quarter: 2012Q3

REPORT INFORMATION
  Report Type: 
  Country: None (occurrence: None)
  Receive Date: 20120822
  Receipt Date: 20120813
  Transmission Date: 20120928
  Serious: No
  Sender: FDA-Public Use
  Company Number: US-ASTRAZENECA-2012SE57346

PATIENT
  Sex: Male

DRUGS (6)
  1. CRESTOR [Suspect]
     Indication: BLOOD CHOLESTEROL ABNORMAL
     Route: 048
     Dates: start: 20120801
  2. FISH OIL [Concomitant]
  3. MULTIVITAMINS CENTRUM SILVER [Concomitant]
  4. METOPROLOL SUCCINATE EXTENDED RELEASE [Suspect]
     Route: 048
  5. CRESTOR [Suspect]
     Indication: LOW DENSITY LIPOPROTEIN INCREASED
     Route: 048
     Dates: start: 20120801
  6. ASPIRIN [Concomitant]

REACTIONS (2)
  - OFF LABEL USE [None]
  - HYPERTENSION [None]
